FAERS Safety Report 7407790-4 (Version None)
Quarter: 2011Q1

REPORT INFORMATION
  Report Type: 
  Country: None (occurrence: None)
  Receive Date: 20110331
  Receipt Date: 20110317
  Transmission Date: 20110831
  Serious: Yes (Other)
  Sender: FDA-Public Use
  Company Number: ACO_22459-2011

PATIENT
  Age: 66 Year
  Sex: Male

DRUGS (16)
  1. MULTIVITAMIN [Concomitant]
  2. KLONOPIN [Concomitant]
  3. AMANTADINE HCL [Concomitant]
  4. VITAMIN D [Concomitant]
  5. STOOL SOFTENER (DOCUSATE SODIUM) [Concomitant]
  6. ALENDRONATE SODIUM [Concomitant]
  7. AZATHIOPRINE [Concomitant]
  8. VENLAFAXINE HCL [Concomitant]
  9. ACETYLSALICYLIC ACID SRT [Concomitant]
  10. METFORMIN HCL (METFORMIN HYDROCHLORIDE) [Concomitant]
  11. ATORVASTATIN [Concomitant]
  12. CALCIUM [Concomitant]
  13. ARICEPT [Concomitant]
  14. CRANBERRY SUPPLEMENT (VACCINIUM MACROCARPON) [Concomitant]
  15. AMPYRA [Suspect]
     Indication: PRODUCT USED FOR UNKNOWN INDICATION
     Dosage: 10 MG, BID, ORAL
     Route: 048
     Dates: start: 20110315, end: 20110316
  16. BACLOFEN [Concomitant]

REACTIONS (3)
  - LACERATION [None]
  - CONVULSION [None]
  - FALL [None]
